FAERS Safety Report 24309609 (Version 1)
Quarter: 2024Q3

REPORT INFORMATION
  Report Type: Spontaneous
  Country: US (occurrence: US)
  Receive Date: 20240912
  Receipt Date: 20240912
  Transmission Date: 20241017
  Serious: No
  Sender: AUROBINDO
  Company Number: US-AUROBINDO-AUR-APL-2024-027576

PATIENT
  Sex: Female
  Weight: 74.8 kg

DRUGS (6)
  1. ONDANSETRON HYDROCHLORIDE [Suspect]
     Active Substance: ONDANSETRON HYDROCHLORIDE
     Indication: Nausea
     Dosage: 4 MILLIGRAM, ONCE A DAY
     Route: 048
     Dates: start: 20240523
  2. ONDANSETRON HYDROCHLORIDE [Suspect]
     Active Substance: ONDANSETRON HYDROCHLORIDE
     Dosage: 8 MILLIGRAM, TWO TIMES A DAY
     Route: 048
     Dates: start: 20240524, end: 20240525
  3. GABAPENTIN [Concomitant]
     Active Substance: GABAPENTIN
     Indication: Neuralgia
     Dosage: UNK
     Route: 065
  4. CELECOXIB [Concomitant]
     Active Substance: CELECOXIB
     Indication: Pain
     Dosage: UNK, ONCE A DAY
     Route: 065
  5. ASPIRIN [Concomitant]
     Active Substance: ASPIRIN
     Indication: Thrombosis prophylaxis
     Dosage: UNK
     Route: 065
  6. SULFAMETHAZINE [Concomitant]
     Active Substance: SULFAMETHAZINE
     Indication: Infection
     Dosage: UNK, TWO TIMES A DAY
     Route: 065

REACTIONS (2)
  - Wrong technique in product usage process [Unknown]
  - Drug ineffective [Unknown]

NARRATIVE: CASE EVENT DATE: 20240523
